FAERS Safety Report 5162023-7 (Version None)
Quarter: 2006Q4

REPORT INFORMATION
  Report Type: 
  Country: None (occurrence: None)
  Receive Date: 20061121
  Receipt Date: 20061110
  Transmission Date: 20070319
  Serious: Yes (Life-Threatening)
  Sender: FDA-Public Use
  Company Number: 2006-285

PATIENT
  Age: 66 Year
  Sex: Female
  Weight: 83.5 kg

DRUGS (5)
  1. CARBOPLATIN [Suspect]
     Indication: OVARIAN CANCER
     Dosage: 650MG PER DAY, IV.
     Route: 042
     Dates: start: 20061010, end: 20061010
  2. DEXAMETHASONE [Concomitant]
  3. METOCLOPRAMIDE [Concomitant]
  4. PIRITON [Concomitant]
  5. RANITIDINE [Concomitant]

REACTIONS (2)
  - CHEST DISCOMFORT [None]
  - VOMITING [None]
